FAERS Safety Report 10224501 (Version 1)
Quarter: 2014Q1

REPORT INFORMATION
  Report Type: Spontaneous
  Country: US (occurrence: None)
  Receive Date: 20140306
  Receipt Date: 20140306
  Transmission Date: 20141002
  Serious: Yes (Hospitalization)
  Sender: FDA-Public Use
  Company Number: 163-21880-13093605

PATIENT
  Age: 58 Year
  Sex: Male
  Weight: 136.08 kg

DRUGS (10)
  1. REVLIMID (LENALIDOMIDE) (10 MILLIGRAM, CAPSULES) [Suspect]
     Indication: PLASMA CELL MYELOMA
     Dosage: 10 MG, 21 IN 21 D, PO  12/01/2007 - ONGOING THERAPY DATES
     Route: 048
     Dates: start: 20071201
  2. DEXAMETHASONE (DEXAMETHASONE) [Concomitant]
  3. AMLODIPINE (AMLODIPINE) [Concomitant]
  4. LYRICA (PREGABALINE_ [Concomitant]
  5. VITAMIN E (TOCOPEROL) [Concomitant]
  6. DOXYCYCLINE (DOXYCYCLINE) [Concomitant]
  7. ALLOPURINOL (ALLOPURINOL) [Concomitant]
  8. FISH OIL (FISH OIL) [Concomitant]
  9. OXYCONTIN (OXYCODONE HYDROCHLORIDE) [Concomitant]
  10. MULTIVITAMINS (MULTIVITAMINS) [Concomitant]

REACTIONS (3)
  - Renal failure [None]
  - Dehydration [None]
  - Local swelling [None]
